FAERS Safety Report 7579778-4 (Version None)
Quarter: 2011Q2

REPORT INFORMATION
  Report Type: 
  Country: None (occurrence: None)
  Receive Date: 20110629
  Receipt Date: 20110622
  Transmission Date: 20111010
  Serious: Yes (Hospitalization, Other)
  Sender: FDA-Public Use
  Company Number: BR-ABBOTT-11P-020-0734350-00

PATIENT
  Sex: Female
  Weight: 90 kg

DRUGS (5)
  1. CALCIUM CARBONATE 500MG/ CALCIFEROL 400 UL [Concomitant]
     Indication: BONE DISORDER
     Route: 048
     Dates: start: 20101201
  2. LOSARTAN POTASSIUM [Concomitant]
     Indication: HYPERTENSION
     Route: 048
     Dates: start: 20100101
  3. COMBINED FORMULA [Concomitant]
     Indication: ANTIINFLAMMATORY THERAPY
     Dosage: CORTICOID TRIAMCINOLONE 2MG/ FAMOTIDINE 40MG/ NAPROXEN 300MG/ FOLIC ACID 1MG
     Dates: start: 20101201
  4. HUMIRA [Suspect]
     Indication: RHEUMATOID ARTHRITIS
     Route: 058
     Dates: start: 20100301
  5. METHOTREXATE [Concomitant]
     Indication: ANTIINFLAMMATORY THERAPY
     Route: 048
     Dates: start: 20080101

REACTIONS (1)
  - UTERINE LEIOMYOMA [None]
